FAERS Safety Report 21258707 (Version 1)
Quarter: 2022Q3

REPORT INFORMATION
  Report Type: Spontaneous
  Country: ES (occurrence: ES)
  Receive Date: 20220826
  Receipt Date: 20220826
  Transmission Date: 20221027
  Serious: Yes (Life-Threatening, Hospitalization, Other)
  Sender: FDA-Public Use
  Company Number: ES-BoehringerIngelheim-2022-BI-188715

PATIENT
  Age: 77 Year
  Sex: Male

DRUGS (13)
  1. CLONIDINE [Suspect]
     Active Substance: CLONIDINE
     Indication: Confusional state
  2. QUETIAPINE [Suspect]
     Active Substance: QUETIAPINE
     Indication: Confusional state
  3. CEFTAZIDIME [Suspect]
     Active Substance: CEFTAZIDIME
     Indication: Confusional state
  4. MORPHINE [Suspect]
     Active Substance: MORPHINE
     Indication: Post laminectomy syndrome
     Route: 037
  5. MORPHINE [Suspect]
     Active Substance: MORPHINE
     Indication: Analgesic therapy
     Route: 048
  6. MORPHINE [Suspect]
     Active Substance: MORPHINE
     Route: 037
  7. MORPHINE [Suspect]
     Active Substance: MORPHINE
     Dosage: 25% OF THE EQUIVALENT DOSE OF INTRATHECAL MORPHINE
     Route: 037
  8. MORPHINE [Suspect]
     Active Substance: MORPHINE
     Dosage: 50 PERCENT OF IM WAS REPLACED WITH 25 PERCENT OF EQUIVALENT DOSE IN CONTINOUS IV INFUSION BY PCA PUM
  9. OLANZAPINE [Suspect]
     Active Substance: OLANZAPINE
     Indication: Confusional state
  10. DEXMEDETOMIDINE [Suspect]
     Active Substance: DEXMEDETOMIDINE
     Indication: Confusional state
  11. CLOXACILLIN [Suspect]
     Active Substance: CLOXACILLIN
     Indication: Confusional state
  12. HALOPERIDOL [Suspect]
     Active Substance: HALOPERIDOL
     Indication: Confusional state
  13. MORPHINE [Concomitant]
     Active Substance: MORPHINE
     Indication: Post laminectomy syndrome

REACTIONS (11)
  - Somnolence [Recovering/Resolving]
  - Respiratory failure [Recovered/Resolved]
  - Drug withdrawal syndrome [Recovering/Resolving]
  - Hypersomnia [Recovered/Resolved]
  - Haemodynamic instability [Recovered/Resolved]
  - Drug ineffective [Recovered/Resolved]
  - Toxicity to various agents [Recovering/Resolving]
  - Delirium [Recovering/Resolving]
  - Confusional state [Recovering/Resolving]
  - Condition aggravated [Recovered/Resolved]
  - Product use in unapproved indication [Unknown]
